FAERS Safety Report 19371738 (Version 3)
Quarter: 2022Q1

REPORT INFORMATION
  Report Type: Spontaneous
  Country: US (occurrence: US)
  Receive Date: 20210603
  Receipt Date: 20220205
  Transmission Date: 20220423
  Serious: No
  Sender: FDA-Public Use
  Company Number: US-SA-SAC20210601001037

PATIENT
  Age: 60 Year
  Sex: Female

DRUGS (3)
  1. DUPIXENT [Suspect]
     Active Substance: DUPILUMAB
     Indication: Dermatitis atopic
     Dosage: 600 MG, 1X (REQ UENCY: 2 PENS, 600MG DAY 1)
     Route: 058
     Dates: start: 20210518, end: 20210518
  2. DUPIXENT [Suspect]
     Active Substance: DUPILUMAB
     Dosage: 300 MG, QOW
     Route: 058
     Dates: start: 202105
  3. DUPIXENT [Suspect]
     Active Substance: DUPILUMAB
     Dosage: 300 MG, QOW
     Route: 058
     Dates: start: 20210608

REACTIONS (8)
  - Aphthous ulcer [Unknown]
  - Muscle spasms [Unknown]
  - Visual impairment [Unknown]
  - Nausea [Unknown]
  - Diarrhoea [Unknown]
  - Suspected COVID-19 [Unknown]
  - Sinusitis [Unknown]
  - Dry eye [Unknown]

NARRATIVE: CASE EVENT DATE: 20210501
